FAERS Safety Report 24660326 (Version 10)
Quarter: 2025Q4

REPORT INFORMATION
  Report Type: Spontaneous
  Country: US (occurrence: US)
  Receive Date: 20241125
  Receipt Date: 20251020
  Transmission Date: 20260118
  Serious: Yes (Other)
  Sender: PFIZER
  Company Number: US-PFIZER INC-202400307591

PATIENT
  Age: 67 Year
  Sex: Female
  Weight: 68.04 kg

DRUGS (6)
  1. TUKYSA [Suspect]
     Active Substance: TUCATINIB
     Indication: Breast cancer metastatic
     Dosage: 300 MG, 2X/DAY (150 MG, TWO TABLETS TWICE A DAY)
  2. TUKYSA [Suspect]
     Active Substance: TUCATINIB
     Indication: Metastases to central nervous system
     Dosage: 250 MG, 2X/DAY (50 MG, 5 TABLETS TWICE DAILY)
     Route: 048
     Dates: start: 202109
  3. TUKYSA [Suspect]
     Active Substance: TUCATINIB
     Dosage: 50MG TABLETS, TAKE 5 TABLETS DAILY
  4. XELODA [Suspect]
     Active Substance: CAPECITABINE
     Indication: Chemotherapy
     Dosage: UNK
     Route: 048
  5. XELODA [Suspect]
     Active Substance: CAPECITABINE
     Dosage: LOWEING DOSE OF XELODA
     Route: 048
     Dates: start: 202301
  6. XELODA [Suspect]
     Active Substance: CAPECITABINE
     Dosage: DOSE INCREASED BACK TO FULL DOSE
     Route: 048
     Dates: start: 202302

REACTIONS (12)
  - Systemic lupus erythematosus [Not Recovered/Not Resolved]
  - Lichenoid keratosis [Not Recovered/Not Resolved]
  - Drug eruption [Not Recovered/Not Resolved]
  - Hyperbilirubinaemia [Unknown]
  - Breast cancer metastatic [Unknown]
  - Metastases to central nervous system [Unknown]
  - Malignant neoplasm progression [Unknown]
  - Muscle spasms [Recovered/Resolved]
  - Fatigue [Not Recovered/Not Resolved]
  - Constipation [Recovered/Resolved]
  - Lymphoedema [Recovering/Resolving]
  - Off label use [Unknown]

NARRATIVE: CASE EVENT DATE: 20231216
